FAERS Safety Report 6835636-1 (Version None)
Quarter: 2010Q3

REPORT INFORMATION
  Report Type: 
  Country: None (occurrence: None)
  Receive Date: 20100713
  Receipt Date: 20100702
  Transmission Date: 20110219
  Serious: Yes (Other)
  Sender: FDA-Public Use
  Company Number: FR-JNJFOC-20091108163

PATIENT
  Age: 51 Year
  Sex: Male

DRUGS (2)
  1. REMICADE [Suspect]
     Indication: CROHN'S DISEASE
     Dosage: FOR 11 MONTHS
     Route: 042
  2. IMUREL [Concomitant]
     Indication: CROHN'S DISEASE

REACTIONS (2)
  - ECZEMA [None]
  - PUSTULAR PSORIASIS [None]
